FAERS Safety Report 26069961 (Version 1)
Quarter: 2025Q4

REPORT INFORMATION
  Report Type: Spontaneous
  Country: US (occurrence: US)
  Receive Date: 20251120
  Receipt Date: 20251120
  Transmission Date: 20260118
  Serious: No
  Sender: CATALYST PHARMA
  Company Number: US-CATALYST PHARMACEUTICALS-US-CATA-25-01577

PATIENT
  Sex: Male
  Weight: 22.095 kg

DRUGS (9)
  1. AGAMREE [Suspect]
     Active Substance: VAMOROLONE
     Indication: Duchenne muscular dystrophy
     Dosage: 2.8 ML DAILY
     Route: 048
     Dates: start: 20241221
  2. AGAMREE [Suspect]
     Active Substance: VAMOROLONE
     Dosage: 3.3 ML ONCE A DAY
     Route: 048
     Dates: start: 20250920
  3. ELDERBERRY IMMUNE COMPLEX [Concomitant]
     Indication: Immune disorder prophylaxis
     Dosage: ONE TABLET AS NEEDED
     Route: 065
  4. FLINTSTONES MULTIVITAMIN [Concomitant]
     Indication: Hypovitaminosis
     Dosage: ONE TABLET DAILY
     Route: 065
  5. FLUOXETINE [Concomitant]
     Active Substance: FLUOXETINE HYDROCHLORIDE
     Indication: Anxiety
     Dosage: 10 MG DAILY
     Route: 065
  6. FLUOXETINE [Concomitant]
     Active Substance: FLUOXETINE HYDROCHLORIDE
     Indication: Selective mutism
  7. MELATONIN [Concomitant]
     Active Substance: MELATONIN
     Indication: Insomnia
     Dosage: 1 MG AS NEEDED
     Route: 065
  8. PEDIA-LAX [Concomitant]
     Indication: Constipation
     Dosage: 400 MG CHEWABLE TABLET AS NEEDED
     Route: 065
  9. ZOFRAN [Concomitant]
     Active Substance: ONDANSETRON HYDROCHLORIDE
     Indication: Nausea
     Dosage: 4 MG AS NEEDED
     Route: 065

REACTIONS (1)
  - Irritability [Not Recovered/Not Resolved]
